FAERS Safety Report 4368177-4 (Version None)
Quarter: 2004Q2

REPORT INFORMATION
  Report Type: 
  Country: None (occurrence: None)
  Receive Date: 20040527
  Receipt Date: 20040308
  Transmission Date: 20050107
  Serious: No
  Sender: FDA-Public Use
  Company Number: 205173

PATIENT
  Age: 35 Year
  Sex: Male

DRUGS (1)
  1. RAPTIVA [Suspect]
     Indication: PSORIASIS
     Dosage: SUBCUTANEOUS
     Route: 058
     Dates: start: 20040304

REACTIONS (5)
  - CHILLS [None]
  - CONJUNCTIVITIS [None]
  - HEADACHE [None]
  - NAUSEA [None]
  - PYREXIA [None]
